FAERS Safety Report 9984606 (Version 1)
Quarter: 2014Q1

REPORT INFORMATION
  Report Type: Spontaneous
  Country: US (occurrence: US)
  Receive Date: 20140307
  Receipt Date: 20140307
  Transmission Date: 20141002
  Serious: No
  Sender: FDA-Public Use
  Company Number: US-BAYER-2014-031487

PATIENT
  Sex: Female

DRUGS (1)
  1. GADAVIST [Suspect]
     Dosage: UNK

REACTIONS (3)
  - Ocular discomfort [Recovering/Resolving]
  - Eyelid oedema [Recovering/Resolving]
  - Eye swelling [Recovering/Resolving]
